FAERS Safety Report 6064512-X (Version None)
Quarter: 2009Q1

REPORT INFORMATION
  Report Type: 
  Country: None (occurrence: None)
  Receive Date: 20090204
  Receipt Date: 20090129
  Transmission Date: 20090719
  Serious: Yes (Hospitalization, Congenital Anomaly)
  Sender: FDA-Public Use
  Company Number: A0743105A

PATIENT
  Sex: Male

DRUGS (1)
  1. PAXIL [Suspect]
     Indication: DRUG USE FOR UNKNOWN INDICATION

REACTIONS (12)
  - ARNOLD-CHIARI MALFORMATION [None]
  - ASTHMA [None]
  - DRUG EXPOSURE DURING PREGNANCY [None]
  - HEADACHE [None]
  - INTENTION TREMOR [None]
  - JAUNDICE [None]
  - NEURAL TUBE DEFECT [None]
  - PAIN IN EXTREMITY [None]
  - SENSORY LOSS [None]
  - TACHYPNOEA [None]
  - TREMOR [None]
  - WITHDRAWAL SYNDROME [None]
